FAERS Safety Report 22184049 (Version 2)
Quarter: 2023Q2

REPORT INFORMATION
  Report Type: Report from Study
  Country: US (occurrence: US)
  Receive Date: 20230407
  Receipt Date: 20230425
  Transmission Date: 20230721
  Serious: Yes (Other)
  Sender: FDA-Public Use
  Company Number: US-ABBVIE-4718206

PATIENT
  Age: 35 Year
  Sex: Male

DRUGS (2)
  1. SKYRIZI [Suspect]
     Active Substance: RISANKIZUMAB-RZAA
     Indication: Psoriasis
     Dosage: WEEK 0, 150 MG/ML?START DATE-2023
     Route: 058
  2. SKYRIZI [Suspect]
     Active Substance: RISANKIZUMAB-RZAA
     Indication: Psoriasis
     Dosage: WEEK 4, 150 MG/ML
     Route: 058
     Dates: start: 20230323

REACTIONS (5)
  - Loss of consciousness [Recovered/Resolved]
  - Eating disorder [Unknown]
  - Concussion [Recovered/Resolved]
  - Hyperthermia [Recovered/Resolved]
  - Stress fracture [Recovering/Resolving]

NARRATIVE: CASE EVENT DATE: 20230301
